FAERS Safety Report 16941563 (Version 1)
Quarter: 2019Q4

REPORT INFORMATION
  Report Type: Spontaneous
  Country: US (occurrence: US)
  Receive Date: 20191020
  Receipt Date: 20191020
  Transmission Date: 20200122
  Serious: Yes (Disabling)
  Sender: FDA-Public Use
  Company Number: None

PATIENT
  Age: 51 Year
  Sex: Female
  Weight: 62.1 kg

DRUGS (25)
  1. ATENOLOL. [Concomitant]
     Active Substance: ATENOLOL
  2. VICODIN [Concomitant]
     Active Substance: ACETAMINOPHEN\HYDROCODONE BITARTRATE
  3. FISH OIL [Concomitant]
     Active Substance: FISH OIL
  4. NOROXIN [Suspect]
     Active Substance: NORFLOXACIN
  5. ADVAIR HFA [Concomitant]
     Active Substance: FLUTICASONE PROPIONATE\SALMETEROL XINAFOATE
  6. LEVOCETIRIZINE [Concomitant]
     Active Substance: LEVOCETIRIZINE
  7. XEPONEX [Concomitant]
  8. ADVIL [Concomitant]
     Active Substance: IBUPROFEN
  9. TYLENOL [Concomitant]
     Active Substance: ACETAMINOPHEN
  10. VIT D [Concomitant]
     Active Substance: VITAMIN D NOS
  11. IRON [Concomitant]
     Active Substance: IRON
  12. CIPROFLOXACIN. [Suspect]
     Active Substance: CIPROFLOXACIN
     Indication: URINARY TRACT INFECTION
     Dosage: ?          QUANTITY:1 TABLET(S);?
     Route: 048
  13. LEVAQUIN [Suspect]
     Active Substance: LEVOFLOXACIN
  14. PREVACID [Concomitant]
     Active Substance: LANSOPRAZOLE
  15. CALCIUM [Concomitant]
     Active Substance: CALCIUM
  16. CQ10 [Concomitant]
     Active Substance: UBIDECARENONE
  17. ELDERBERRY [Concomitant]
     Active Substance: HERBALS
  18. LEVOTHYROXINE. [Concomitant]
     Active Substance: LEVOTHYROXINE
  19. SINGULAIR [Concomitant]
     Active Substance: MONTELUKAST SODIUM
  20. FLONASE [Concomitant]
     Active Substance: FLUTICASONE PROPIONATE
  21. AZELASTINE. [Concomitant]
     Active Substance: AZELASTINE HYDROCHLORIDE
  22. CYMBALTA [Concomitant]
     Active Substance: DULOXETINE HYDROCHLORIDE
  23. BELBUCCA [Concomitant]
  24. VITAMIN C [Concomitant]
     Active Substance: ASCORBIC ACID
  25. ZINC. [Concomitant]
     Active Substance: ZINC

REACTIONS (7)
  - Pain [None]
  - Limb discomfort [None]
  - Ill-defined disorder [None]
  - Musculoskeletal discomfort [None]
  - Hypokinesia [None]
  - General physical health deterioration [None]
  - Back disorder [None]

NARRATIVE: CASE EVENT DATE: 20101006
